FAERS Safety Report 8470148-3 (Version None)
Quarter: 2012Q2

REPORT INFORMATION
  Report Type: 
  Country: None (occurrence: None)
  Receive Date: 20120627
  Receipt Date: 20120615
  Transmission Date: 20120825
  Serious: Yes (Other)
  Sender: FDA-Public Use
  Company Number: CL-BRISTOL-MYERS SQUIBB COMPANY-16691073

PATIENT
  Sex: Female

DRUGS (1)
  1. ORENCIA [Suspect]
     Indication: ANKYLOSING SPONDYLITIS
     Dates: start: 20110401

REACTIONS (2)
  - FOOT FRACTURE [None]
  - TENDON DISORDER [None]
